FAERS Safety Report 14328173 (Version 3)
Quarter: 2018Q2

REPORT INFORMATION
  Report Type: Spontaneous
  Country: VE (occurrence: VE)
  Receive Date: 20171227
  Receipt Date: 20180403
  Transmission Date: 20180711
  Serious: Yes (Death, Hospitalization)
  Sender: FDA-Public Use
  Company Number: VE-BAYER-2017-244173

PATIENT
  Age: 2 Year
  Sex: Male

DRUGS (1)
  1. KOGENATE [Suspect]
     Active Substance: ANTIHEMOPHILIC FACTOR, HUMAN RECOMBINANT
     Indication: LIMB INJURY
     Dosage: 500 IU, ONCE
     Route: 042

REACTIONS (9)
  - Hypotension [Fatal]
  - Tongue injury [None]
  - Tachycardia [Fatal]
  - Hypovolaemic shock [Fatal]
  - Anti factor VIII antibody positive [None]
  - Fall [None]
  - Drug ineffective [Not Recovered/Not Resolved]
  - Tongue haemorrhage [Fatal]
  - Circulatory collapse [None]

NARRATIVE: CASE EVENT DATE: 20171118
